FAERS Safety Report 12583964 (Version 1)
Quarter: 2016Q3

REPORT INFORMATION
  Report Type: Spontaneous
  Country: TR (occurrence: TR)
  Receive Date: 20160722
  Receipt Date: 20160722
  Transmission Date: 20161109
  Serious: Yes (Other)
  Sender: FDA-Public Use
  Company Number: PHHY2016TR100254

PATIENT
  Age: 59 Year
  Sex: Female

DRUGS (2)
  1. ACLASTA [Suspect]
     Active Substance: ZOLEDRONIC ACID
     Indication: PRODUCT USED FOR UNKNOWN INDICATION
     Dosage: UNK
     Route: 042
  2. AYRA [Concomitant]
     Indication: HYPERTENSION
     Dosage: 16 MG, QD
     Route: 048

REACTIONS (6)
  - Deafness [Unknown]
  - Pruritus [Unknown]
  - Bone pain [Unknown]
  - Tension [Unknown]
  - Anger [Unknown]
  - Pain in extremity [Unknown]
